FAERS Safety Report 5087823-3 (Version None)
Quarter: 2006Q3

REPORT INFORMATION
  Report Type: 
  Country: None (occurrence: None)
  Receive Date: 20060824
  Receipt Date: 20060816
  Transmission Date: 20061208
  Serious: Yes (Hospitalization)
  Sender: FDA-Public Use
  Company Number: US-SANOFI-SYNTHELABO-A03200605233

PATIENT
  Sex: Male

DRUGS (5)
  1. ELOXATIN [Suspect]
     Indication: COLON CANCER STAGE IV
     Route: 042
     Dates: start: 20060814, end: 20060814
  2. LEUCOVORIN CALCIUM [Concomitant]
     Route: 042
  3. FLUOROURACIL [Concomitant]
     Route: 042
  4. DECADRON [Concomitant]
     Route: 042
  5. ANZEMET [Concomitant]
     Route: 042

REACTIONS (3)
  - CHILLS [None]
  - RENAL FAILURE [None]
  - RENAL TUBULAR NECROSIS [None]
